FAERS Safety Report 9142610 (Version 1)
Quarter: 2013Q1

REPORT INFORMATION
  Report Type: Report from Study
  Country: US (occurrence: US)
  Receive Date: 20130306
  Receipt Date: 20130306
  Transmission Date: 20140127
  Serious: Yes (Hospitalization)
  Sender: FDA-Public Use
  Company Number: US-JNJFOC-20130300294

PATIENT
  Age: 16 Year
  Sex: Male
  Weight: 68.1 kg

DRUGS (11)
  1. REMICADE [Suspect]
     Indication: CROHN^S DISEASE
     Route: 042
     Dates: end: 20120415
  2. REMICADE [Suspect]
     Indication: CROHN^S DISEASE
     Route: 042
     Dates: start: 20100513, end: 20120403
  3. METHOTREXATE [Concomitant]
  4. BUDESONIDE [Concomitant]
  5. FOLIC ACID [Concomitant]
  6. GUANFACINE [Concomitant]
  7. SERTRALINE [Concomitant]
  8. LEVALBUTEROL [Concomitant]
  9. IRON [Concomitant]
  10. OMEGA 3 [Concomitant]
  11. LORATADINE [Concomitant]

REACTIONS (1)
  - Ileal stenosis [Recovered/Resolved]
